FAERS Safety Report 8292727-9 (Version None)
Quarter: 2012Q2

REPORT INFORMATION
  Report Type: 
  Country: None (occurrence: None)
  Receive Date: 20120417
  Receipt Date: 20110728
  Transmission Date: 20120825
  Serious: No
  Sender: FDA-Public Use
  Company Number: US-ASTRAZENECA-2011SE45393

PATIENT
  Age: 53 Year
  Sex: Female

DRUGS (4)
  1. NEXIUM [Suspect]
     Indication: BARRETT'S OESOPHAGUS
     Route: 048
     Dates: start: 20010101
  2. VITAMIN D [Concomitant]
  3. LYRICA [Concomitant]
  4. CLONAZEPAM [Concomitant]

REACTIONS (3)
  - PANIC ATTACK [None]
  - COMPRESSION FRACTURE [None]
  - FIBROMYALGIA [None]
